FAERS Safety Report 5625457-X (Version None)
Quarter: 2008Q1

REPORT INFORMATION
  Report Type: 
  Country: None (occurrence: None)
  Receive Date: 20080211
  Receipt Date: 20080123
  Transmission Date: 20080703
  Serious: Yes (Hospitalization)
  Sender: FDA-Public Use
  Company Number: 20084586

PATIENT
  Sex: Female

DRUGS (1)
  1. LIORESAL [Suspect]
     Indication: MUSCLE SPASTICITY
     Dosage: 551.4 MCG,DAILY,INTRATHECAL
     Route: 037

REACTIONS (17)
  - ASPIRATION TRACHEAL ABNORMAL [None]
  - BLOOD PRESSURE INCREASED [None]
  - DEHYDRATION [None]
  - DEVICE FAILURE [None]
  - DEVICE MALFUNCTION [None]
  - HEART RATE INCREASED [None]
  - HYPERTONIA [None]
  - HYPOTONIA [None]
  - LISTLESS [None]
  - MUSCLE TWITCHING [None]
  - NO THERAPEUTIC RESPONSE [None]
  - PAIN [None]
  - PNEUMONIA ASPIRATION [None]
  - SEDATION [None]
  - SOMNOLENCE [None]
  - UNDERDOSE [None]
  - URINARY TRACT INFECTION STAPHYLOCOCCAL [None]
